FAERS Safety Report 22050991 (Version 1)
Quarter: 2023Q1

REPORT INFORMATION
  Report Type: Spontaneous
  Country: US (occurrence: None)
  Receive Date: 20230301
  Receipt Date: 20230301
  Transmission Date: 20230418
  Serious: No
  Sender: FDA-Public Use
  Company Number: None

PATIENT
  Sex: Female

DRUGS (1)
  1. COSENTYX [Suspect]
     Active Substance: SECUKINUMAB
     Indication: Ankylosing spondylitis
     Dosage: FREQUENCY : MONTHLY;?
     Route: 058
     Dates: start: 20221019

REACTIONS (11)
  - Anxiety [None]
  - Suicidal ideation [None]
  - Migraine [None]
  - Visual impairment [None]
  - Fall [None]
  - Balance disorder [None]
  - Seizure [None]
  - Swelling [None]
  - Memory impairment [None]
  - Dyspnoea [None]
  - Insomnia [None]
